FAERS Safety Report 8795364 (Version 1)
Quarter: 2012Q4

REPORT INFORMATION
  Report Type: 
  Country: US (occurrence: US)
  Receive Date: 20120917
  Receipt Date: 20120917
  Transmission Date: 20130627
  Serious: Yes (Death, Other)
  Sender: FDA-Public Use
  Company Number: US-TEVA-358691USA

PATIENT
  Age: 19 Year
  Sex: Female

DRUGS (4)
  1. CISPLATIN [Suspect]
     Indication: MEDULLOBLASTOMA
     Dosage: 8 cycles as per COG study A9961 regimen B
     Route: 065
  2. CYCLOPHOSPHAMIDE [Suspect]
     Indication: MEDULLOBLASTOMA
     Dosage: 8 cycles as per COG study A9961 regimen B
     Route: 065
  3. VINCRISTINE [Suspect]
     Indication: MEDULLOBLASTOMA
     Dosage: 8 cycles as per COG study A9961 regimen B
     Route: 065
  4. VINCRISTINE [Suspect]
     Indication: MEDULLOBLASTOMA
     Dosage: Weekly
     Route: 065

REACTIONS (3)
  - Blast crisis in myelogenous leukaemia [Unknown]
  - Multi-organ failure [Fatal]
  - Sepsis [Fatal]
